FAERS Safety Report 8560708 (Version 3)
Quarter: 2013Q3

REPORT INFORMATION
  Report Type: Spontaneous
  Country: FR (occurrence: FR)
  Receive Date: 20120514
  Receipt Date: 20130927
  Transmission Date: 20140515
  Serious: Yes (Death, Other)
  Sender: FDA-Public Use
  Company Number: FR-UCBSA-056919

PATIENT
  Sex: Male

DRUGS (3)
  1. CIMZIA [Suspect]
     Route: 058
     Dates: start: 2011, end: 2011
  2. ADALIMUMAB [Concomitant]
  3. ADALIMUMAB [Concomitant]
     Dates: start: 2007, end: 2011

REACTIONS (2)
  - Cardiac arrest [Fatal]
  - Renal cancer [Not Recovered/Not Resolved]
